FAERS Safety Report 6966747-8 (Version None)
Quarter: 2010Q3

REPORT INFORMATION
  Report Type: 
  Country: None (occurrence: None)
  Receive Date: 20100906
  Receipt Date: 20100823
  Transmission Date: 20110219
  Serious: Yes (Other)
  Sender: FDA-Public Use
  Company Number: US-ELI_LILLY_AND_COMPANY-US201008008220

PATIENT
  Sex: Male

DRUGS (4)
  1. HUMULIN 70/30 [Suspect]
     Indication: DIABETES MELLITUS
     Dosage: 35 U, EACH MORNING
     Dates: start: 20100711
  2. HUMULIN 70/30 [Suspect]
     Dosage: 25 U, EACH EVENING
     Dates: start: 20100711
  3. HUMULIN 70/30 [Suspect]
     Dosage: 35 U, EACH MORNING
     Dates: start: 20100711
  4. HUMULIN 70/30 [Suspect]
     Dosage: 25 U, EACH EVENING
     Dates: start: 20100711

REACTIONS (6)
  - ALTERED STATE OF CONSCIOUSNESS [None]
  - BLINDNESS [None]
  - BLOOD GLUCOSE DECREASED [None]
  - BLOOD GLUCOSE INCREASED [None]
  - DRUG INEFFECTIVE [None]
  - SCREAMING [None]
